FAERS Safety Report 6537672-1 (Version None)
Quarter: 2010Q1

REPORT INFORMATION
  Report Type: 
  Country: None (occurrence: None)
  Receive Date: 20100114
  Receipt Date: 20100106
  Transmission Date: 20100710
  Serious: Yes (Other)
  Sender: FDA-Public Use
  Company Number: Z0002785A

PATIENT
  Sex: Male
  Weight: 94.4 kg

DRUGS (1)
  1. ZANAMIVIR [Suspect]
     Indication: INFLUENZA
     Route: 042
     Dates: start: 20100102, end: 20100103

REACTIONS (1)
  - CYTOLYTIC HEPATITIS [None]
